FAERS Safety Report 7114163-0 (Version None)
Quarter: 2010Q4

REPORT INFORMATION
  Report Type: 
  Country: None (occurrence: None)
  Receive Date: 20101119
  Receipt Date: 20101112
  Transmission Date: 20110411
  Serious: Yes (Other)
  Sender: FDA-Public Use
  Company Number: SE-EISAI INC.-E2020-06414-SPO-SE

PATIENT
  Age: 76 Year
  Sex: Female

DRUGS (2)
  1. ARICEPT [Suspect]
     Route: 048
     Dates: start: 20091201
  2. ARICEPT [Suspect]
     Route: 048

REACTIONS (2)
  - CARCINOID SYNDROME [None]
  - DRUG INEFFECTIVE [None]
